FAERS Safety Report 22351492 (Version 2)
Quarter: 2023Q2

REPORT INFORMATION
  Report Type: Spontaneous
  Country: US (occurrence: US)
  Receive Date: 20230522
  Receipt Date: 20230620
  Transmission Date: 20230721
  Serious: No
  Sender: FDA-Public Use
  Company Number: US-BRISTOL-MYERS SQUIBB COMPANY-2023-071576

PATIENT
  Age: 72 Year
  Sex: Female
  Weight: 99.33 kg

DRUGS (1)
  1. REVLIMID [Suspect]
     Active Substance: LENALIDOMIDE
     Indication: Plasma cell myeloma
     Dosage: 21D ON 7D OFF
     Route: 048
     Dates: start: 20221101

REACTIONS (5)
  - Bronchitis [Unknown]
  - Fatigue [Unknown]
  - Dizziness [Unknown]
  - Blood potassium decreased [Unknown]
  - Haemoglobin decreased [Unknown]
